FAERS Safety Report 4332118-6 (Version None)
Quarter: 2004Q1

REPORT INFORMATION
  Report Type: 
  Country: None (occurrence: None)
  Receive Date: 20040329
  Receipt Date: 20040317
  Transmission Date: 20041129
  Serious: Yes (Hospitalization)
  Sender: FDA-Public Use
  Company Number: 163-20785-04030457

PATIENT
  Age: 67 Year
  Sex: Male

DRUGS (7)
  1. THALOMID [Suspect]
     Indication: MULTIPLE MYELOMA
     Dosage: 200 MG, QD, ORAL
     Route: 048
     Dates: start: 20030823, end: 20030828
  2. DEXAMETHASONE [Suspect]
     Dosage: 40 MG, DAYS 1-4, ORAL
     Route: 048
     Dates: start: 20030823, end: 20030828
  3. CISPLATIN [Suspect]
     Dosage: 19 MG, DAYS 1-4, ORAL
     Route: 048
     Dates: start: 20030918
  4. ADRIAMYCIN (DOXORUBICIN) [Suspect]
     Dosage: 76 MG, DAYS 1-4, ORAL
     Route: 048
     Dates: start: 20030918
  5. CYCLOPHOSPHAMIDE [Suspect]
     Dosage: 744 MG, DAYS 1-4, ORAL
     Route: 048
     Dates: start: 20030918
  6. ETOPOSIDE [Suspect]
     Dosage: 74MG, DAYS 1-4, ORAL
     Route: 048
     Dates: start: 20030918
  7. MELPHALAN (MELPHALAN) (INJECTION) [Suspect]
     Dosage: 200 MG/M2, DAYS 1-4, INTRAVENOUS
     Route: 042
     Dates: start: 20030918

REACTIONS (17)
  - BLOOD LACTATE DEHYDROGENASE INCREASED [None]
  - BLOOD UREA DECREASED [None]
  - C-REACTIVE PROTEIN INCREASED [None]
  - CLOSTRIDIUM COLITIS [None]
  - COUGH [None]
  - DIARRHOEA [None]
  - GAMMA-GLUTAMYLTRANSFERASE INCREASED [None]
  - HAEMATOCRIT DECREASED [None]
  - HAEMOGLOBIN DECREASED [None]
  - PROTEIN TOTAL DECREASED [None]
  - PROTEIN URINE PRESENT [None]
  - PROTHROMBIN TIME PROLONGED [None]
  - PYREXIA [None]
  - RED BLOOD CELL COUNT DECREASED [None]
  - STAPHYLOCOCCAL BACTERAEMIA [None]
  - THROMBOCYTOPENIA [None]
  - WHITE BLOOD CELL COUNT DECREASED [None]
